FAERS Safety Report 4359220-7 (Version None)
Quarter: 2004Q2

REPORT INFORMATION
  Report Type: 
  Country: None (occurrence: None)
  Receive Date: 20040517
  Receipt Date: 20040517
  Transmission Date: 20050107
  Serious: Yes (Other)
  Sender: FDA-Public Use
  Company Number: None

PATIENT
  Age: 71 Year
  Sex: Male
  Weight: 51.7 kg

DRUGS (11)
  1. MIDAZOLAM HCL [Suspect]
     Dosage: 1 MG, X 5 DOSES IV PIGGY
     Route: 042
     Dates: start: 20040311, end: 20040311
  2. MEPERIDINE HCL [Suspect]
     Dosage: 25 MG X 3 DOSES, IV
     Route: 042
     Dates: start: 20040311, end: 20040311
  3. ADALAT CC [Concomitant]
  4. FOLIC ACID [Concomitant]
  5. THIAMINE HCL [Concomitant]
  6. HEPARIN NA, PORK [Concomitant]
  7. EPOGEN [Concomitant]
  8. PIPERACILLIN/TAZOBACTAM [Concomitant]
  9. AMPICILLIN SODIUM/SULBACTAM SODIUM [Concomitant]
  10. RANITIDINE [Concomitant]
  11. METRONIDAZOLE [Concomitant]

REACTIONS (1)
  - HYPOXIA [None]
